FAERS Safety Report 17447648 (Version 1)
Quarter: 2020Q1

REPORT INFORMATION
  Report Type: Spontaneous
  Country: IT (occurrence: IT)
  Receive Date: 20200221
  Receipt Date: 20200221
  Transmission Date: 20200409
  Serious: Yes (Other)
  Sender: FDA-Public Use
  Company Number: IT-009507513-2002ITA006692

PATIENT
  Age: 78 Year
  Sex: Male

DRUGS (2)
  1. XIGDUO XR [Concomitant]
     Active Substance: DAPAGLIFLOZIN PROPANEDIOL\METFORMIN HYDROCHLORIDE
     Indication: TYPE 2 DIABETES MELLITUS
     Dates: start: 201706
  2. FINASTERIDE. [Suspect]
     Active Substance: FINASTERIDE
     Indication: BENIGN PROSTATIC HYPERPLASIA
     Route: 048
     Dates: start: 20191230, end: 20200202

REACTIONS (4)
  - Libido decreased [Not Recovered/Not Resolved]
  - Penile oedema [Recovered/Resolved]
  - Penile erythema [Recovering/Resolving]
  - Pruritus genital [Recovering/Resolving]
